FAERS Safety Report 8988976 (Version 1)
Quarter: 2012Q4

REPORT INFORMATION
  Report Type: 
  Country: US (occurrence: US)
  Receive Date: 20121227
  Receipt Date: 20121227
  Transmission Date: 20130627
  Serious: Yes (Other)
  Sender: FDA-Public Use
  Company Number: US-PFIZER INC-2012328356

PATIENT
  Age: 27 Year

DRUGS (18)
  1. NEURONTIN [Suspect]
     Dosage: 600 mg, 4x/day
  2. NEURONTIN [Suspect]
     Dosage: 800 mg, 4x/day
  3. METFORMIN [Concomitant]
     Dosage: 500 mg, 2x/day
  4. SINGULAIR [Concomitant]
     Dosage: 10 mg, at bedtime
  5. DIOVAN HCT [Concomitant]
     Dosage: 160mg/12.5mg, 2x/day
  6. CARISOPRODOL [Concomitant]
     Dosage: 350 mg, 1 at bedtime
  7. ACETAMINOPHEN W/OXYCODONE [Concomitant]
     Dosage: 5/325 mg, 3x/day
  8. MEDROXYPROGESTERONE ACETATE [Concomitant]
     Dosage: 10 mg, 1 everyday first 21 days
  9. GLIMEPIRIDE [Concomitant]
     Dosage: 2 mg, 2x/day
  10. HYDROCHLOROTHIAZIDE [Concomitant]
     Dosage: 25 mg, 1 in morning
  11. LORATADINE [Concomitant]
     Dosage: 10 mg, 1x/day
  12. CYCLOBENZAPRINE [Concomitant]
     Dosage: 30 mg/day
  13. DILTIAZEM [Concomitant]
     Dosage: 60 mg, 1x/day
  14. NOVOLOG [Concomitant]
     Dosage: 70/30 SSCC AM/65Pm 2 a day
  15. ADVAIR [Concomitant]
     Dosage: 250/50
  16. ALBUTEROL [Concomitant]
     Dosage: UNK
  17. IPRATROPIUM BROMIDE [Concomitant]
     Dosage: UNK
  18. PROVENTIL AIR HFA [Concomitant]
     Dosage: 2 puffs every 6 hrs

REACTIONS (7)
  - Diabetes mellitus [Unknown]
  - Pain [Unknown]
  - Depression [Unknown]
  - Asthma [Unknown]
  - Hypertension [Unknown]
  - Hypersensitivity [Unknown]
  - Polycystic ovaries [Unknown]
